FAERS Safety Report 5321818-7 (Version None)
Quarter: 2007Q2

REPORT INFORMATION
  Report Type: 
  Country: None (occurrence: None)
  Receive Date: 20070510
  Receipt Date: 20070430
  Transmission Date: 20071010
  Serious: Yes (Hospitalization)
  Sender: FDA-Public Use
  Company Number: GB-ELI_LILLY_AND_COMPANY-GB200705000048

PATIENT
  Age: 62 Year
  Sex: Female

DRUGS (2)
  1. EVISTA [Suspect]
     Indication: OSTEOPOROSIS
     Dates: start: 19990101
  2. PROTELOS [Concomitant]
     Indication: OSTEOPOROSIS

REACTIONS (2)
  - CELLULITIS [None]
  - OEDEMA PERIPHERAL [None]
